FAERS Safety Report 10416831 (Version 1)
Quarter: 2014Q3

REPORT INFORMATION
  Report Type: Spontaneous
  Country: US (occurrence: None)
  Receive Date: 20140826
  Receipt Date: 20140826
  Transmission Date: 20150326
  Serious: Yes (Other)
  Sender: FDA-Public Use
  Company Number: CIO14050268

PATIENT
  Age: 45 Year
  Sex: Female
  Weight: 77.1 kg

DRUGS (1)
  1. CREST 3D WHITE VIVID RADIANT MINT [Suspect]
     Active Substance: SODIUM FLUORIDE
     Indication: DENTAL CARE
     Dosage: 1 APPLIC, 2/DAY, FULL BRUSHHEAD OF PASTE, PEA SIZED AMOUNT, INTRAORAL?
     Dates: start: 2012, end: 20140719

REACTIONS (4)
  - Pulpitis dental [None]
  - Sensitivity of teeth [None]
  - Tooth loss [None]
  - Tooth discolouration [None]

NARRATIVE: CASE EVENT DATE: 201405
